FAERS Safety Report 10767165 (Version 1)
Quarter: 2015Q1

REPORT INFORMATION
  Report Type: Spontaneous
  Country: JP (occurrence: JP)
  Receive Date: 20150205
  Receipt Date: 20150205
  Transmission Date: 20150721
  Serious: Yes (Hospitalization)
  Sender: FDA-Public Use
  Company Number: PHJP2015JP001353

PATIENT
  Sex: Female

DRUGS (2)
  1. AROMASIN [Suspect]
     Active Substance: EXEMESTANE
     Indication: BREAST CANCER RECURRENT
     Dosage: 25 MG, QD
     Route: 048
     Dates: start: 20140729, end: 201412
  2. AFINITOR [Suspect]
     Active Substance: EVEROLIMUS
     Indication: BREAST CANCER RECURRENT
     Dosage: 10 MG, QD
     Route: 048
     Dates: start: 20140729, end: 201412

REACTIONS (2)
  - Hypoaesthesia [Not Recovered/Not Resolved]
  - Cerebral infarction [Recovering/Resolving]

NARRATIVE: CASE EVENT DATE: 201412
